FAERS Safety Report 5405515-5 (Version None)
Quarter: 2007Q3

REPORT INFORMATION
  Report Type: 
  Country: None (occurrence: None)
  Receive Date: 20070803
  Receipt Date: 20070725
  Transmission Date: 20080115
  Serious: Yes (Other)
  Sender: FDA-Public Use
  Company Number: FR-PFIZER INC-2007061775

PATIENT
  Sex: Male

DRUGS (6)
  1. LYRICA [Suspect]
     Indication: NEURALGIA
     Dosage: DAILY DOSE:350MG
  2. NEURONTIN [Suspect]
     Indication: NEURALGIA
     Dosage: DAILY DOSE:3200MG
  3. BACLOFEN [Concomitant]
  4. MYOLASTAN [Concomitant]
  5. CLONAZEPAM [Concomitant]
  6. SIRDALUD [Concomitant]

REACTIONS (6)
  - BLEPHAROSPASM [None]
  - BLOOD CREATINE PHOSPHOKINASE INCREASED [None]
  - DRUG INEFFECTIVE [None]
  - MUSCLE CONTRACTURE [None]
  - MYALGIA [None]
  - SENSORY LOSS [None]
